FAERS Safety Report 16672136 (Version 2)
Quarter: 2019Q3

REPORT INFORMATION
  Report Type: Spontaneous
  Country: JP (occurrence: JP)
  Receive Date: 20190806
  Receipt Date: 20190819
  Transmission Date: 20191004
  Serious: No
  Sender: FDA-Public Use
  Company Number: JP-BEH-2019104977

PATIENT
  Age: 60 Year
  Sex: Male
  Weight: 45 kg

DRUGS (2)
  1. ALBUMINAR-25 [Suspect]
     Active Substance: ALBUMIN HUMAN
     Indication: HYPOALBUMINAEMIA
  2. ALBUMINAR-25 [Suspect]
     Active Substance: ALBUMIN HUMAN
     Indication: VOLUME BLOOD DECREASED
     Dosage: 12.5G/50ML AT TWO VIALS
     Route: 042
     Dates: start: 20190713, end: 20190713

REACTIONS (2)
  - Erythema [Recovered/Resolved]
  - Oropharyngeal discomfort [Recovered/Resolved]

NARRATIVE: CASE EVENT DATE: 20190713
